FAERS Safety Report 15877081 (Version 1)
Quarter: 2019Q1

REPORT INFORMATION
  Report Type: Spontaneous
  Country: FR (occurrence: FR)
  Receive Date: 20190128
  Receipt Date: 20190128
  Transmission Date: 20190417
  Serious: Yes (Death, Life-Threatening)
  Sender: FDA-Public Use
  Company Number: FR-B.I. PHARMACEUTICALS,INC./RIDGEFIELD-2006-FF-01186FF

PATIENT
  Age: 39 Year
  Sex: Male
  Weight: 60 kg

DRUGS (4)
  1. VIRAMUNE [Suspect]
     Active Substance: NEVIRAPINE
     Indication: PRODUCT USED FOR UNKNOWN INDICATION
     Route: 065
     Dates: start: 20060915, end: 20060929
  2. FUCIDINE (FUSIDIC ACID) [Suspect]
     Active Substance: FUSIDIC ACID
     Indication: FURUNCLE
     Route: 061
     Dates: start: 20061011, end: 20061022
  3. VIRAMUNE [Suspect]
     Active Substance: NEVIRAPINE
     Route: 048
     Dates: start: 20060930, end: 20061022
  4. TRUVADA [Suspect]
     Active Substance: EMTRICITABINE\TENOFOVIR DISOPROXIL FUMARATE
     Indication: PRODUCT USED FOR UNKNOWN INDICATION
     Route: 065
     Dates: start: 20060915, end: 20061022

REACTIONS (7)
  - Blepharitis [Fatal]
  - Furuncle [Unknown]
  - Conjunctivitis [Fatal]
  - Toxic epidermal necrolysis [Fatal]
  - Tracheal obstruction [Fatal]
  - Rash [Fatal]
  - Cardio-respiratory arrest [Fatal]

NARRATIVE: CASE EVENT DATE: 20061021
